FAERS Safety Report 7081239-6 (Version None)
Quarter: 2010Q4

REPORT INFORMATION
  Report Type: 
  Country: None (occurrence: None)
  Receive Date: 20101103
  Receipt Date: 20100913
  Transmission Date: 20110411
  Serious: No
  Sender: FDA-Public Use
  Company Number: US-BAYER-201021435BCC

PATIENT
  Sex: Female

DRUGS (3)
  1. ALEVE (CAPLET) [Suspect]
     Indication: MIGRAINE
     Route: 048
  2. FIORINAL [Concomitant]
     Indication: MIGRAINE
     Route: 065
  3. FIORICET [Concomitant]
     Indication: MIGRAINE
     Route: 065

REACTIONS (1)
  - MIGRAINE [None]
